FAERS Safety Report 19009905 (Version 1)
Quarter: 2021Q1

REPORT INFORMATION
  Report Type: Other
  Country: RO (occurrence: RO)
  Receive Date: 20210315
  Receipt Date: 20210315
  Transmission Date: 20210420
  Serious: Yes (Hospitalization, Other)
  Sender: FDA-Public Use
  Company Number: RO-NAVINTA LLC-000129

PATIENT
  Age: 73 Year
  Sex: Female

DRUGS (3)
  1. INDOMETACIN [Suspect]
     Active Substance: INDOMETHACIN
     Indication: ULCERATIVE KERATITIS
     Dosage: FOUR TIMES A DAY
     Route: 047
  2. METHOTREXATE. [Concomitant]
     Active Substance: METHOTREXATE
     Indication: RHEUMATOID ARTHRITIS
     Dosage: THREE TIMES A WEEK
  3. GENTAMICIN. [Concomitant]
     Active Substance: GENTAMICIN
     Indication: ULCERATIVE KERATITIS
     Dosage: FOUR TIMES A DAY
     Route: 047

REACTIONS (3)
  - Off label use [Unknown]
  - Contraindicated product administered [Unknown]
  - Corneal perforation [Recovered/Resolved]
